FAERS Safety Report 6794233-7 (Version None)
Quarter: 2010Q2

REPORT INFORMATION
  Report Type: 
  Country: None (occurrence: None)
  Receive Date: 20100625
  Receipt Date: 20100617
  Transmission Date: 20101027
  Serious: Yes (Hospitalization, Other)
  Sender: FDA-Public Use
  Company Number: 2007BI000255

PATIENT
  Sex: Female

DRUGS (1)
  1. AVONEX [Suspect]
     Indication: MULTIPLE SCLEROSIS
     Route: 030
     Dates: start: 19980622, end: 20060724

REACTIONS (10)
  - HEPATITIS C [None]
  - INFLUENZA [None]
  - MULTIPLE SCLEROSIS RELAPSE [None]
  - MUSCLE SPASTICITY [None]
  - NAUSEA [None]
  - PARALYSIS [None]
  - TEMPERATURE INTOLERANCE [None]
  - VERTIGO [None]
  - WEIGHT DECREASED [None]
  - WEIGHT GAIN POOR [None]
